FAERS Safety Report 7648819-8 (Version None)
Quarter: 2011Q3

REPORT INFORMATION
  Report Type: 
  Country: None (occurrence: None)
  Receive Date: 20110801
  Receipt Date: 20110728
  Transmission Date: 20111222
  Serious: No
  Sender: FDA-Public Use
  Company Number: US-PFIZER INC-2011172195

PATIENT
  Sex: Male
  Weight: 63.492 kg

DRUGS (8)
  1. ACETAMINOPHEN AND HYDROCODONE BITARTRATE [Concomitant]
     Dosage: 5-500 MG
  2. PAXIL [Concomitant]
     Dosage: 10 MG, UNK
  3. MULTI-VITAMINS [Concomitant]
     Dosage: UNK
  4. XANAX [Concomitant]
     Dosage: 0.25 MG, UNK
  5. MYLANTA [Concomitant]
     Dosage: UNK
  6. SUTENT [Suspect]
     Dosage: 50 MG, 1X/DAY, FOR 4 WEEKS ON AND 2 WEEKS OFF
     Route: 048
  7. RANITIDINE [Concomitant]
     Dosage: 75 MG, UNK
  8. ATENOLOL [Concomitant]
     Dosage: 25 MG, UNK

REACTIONS (2)
  - DYSPEPSIA [None]
  - HICCUPS [None]
